FAERS Safety Report 22146156 (Version 1)
Quarter: 2023Q1

REPORT INFORMATION
  Report Type: Other
  Country: US (occurrence: None)
  Receive Date: 20230328
  Receipt Date: 20230328
  Transmission Date: 20230418
  Serious: Yes (Hospitalization)
  Sender: FDA-Public Use
  Company Number: US-ROCHE-3315872

PATIENT
  Age: 97 Year
  Sex: Female

DRUGS (1)
  1. ERIVEDGE [Suspect]
     Active Substance: VISMODEGIB
     Indication: Basal cell carcinoma
     Dosage: TAKE 1 CAPSULE BY MOUTH ON MONDAY, WEDNESDAY, AND FRIDAY. SWALLOW WHOLE. DO NOT OPEN OR CRUSH.
     Route: 048

REACTIONS (1)
  - Pelvic fracture [Unknown]
